FAERS Safety Report 24059114 (Version 1)
Quarter: 2024Q3

REPORT INFORMATION
  Report Type: Spontaneous
  Country: CN (occurrence: CN)
  Receive Date: 20240708
  Receipt Date: 20240708
  Transmission Date: 20241016
  Serious: Yes (Hospitalization, Other)
  Sender: BAXTER
  Company Number: None

PATIENT
  Age: 38 Year
  Sex: Female
  Weight: 63 kg

DRUGS (6)
  1. CYCLOPHOSPHAMIDE [Suspect]
     Active Substance: CYCLOPHOSPHAMIDE
     Indication: Breast cancer female
     Dosage: 1 G, ONCE A DAY, DILUTED WITH 100 ML OF 0.9% SODIUM CHLORIDE, FIRST CYCLE
     Route: 041
     Dates: start: 20240605, end: 20240605
  2. CYCLOPHOSPHAMIDE [Suspect]
     Active Substance: CYCLOPHOSPHAMIDE
     Indication: Adjuvant therapy
  3. SODIUM CHLORIDE [Suspect]
     Active Substance: SODIUM CHLORIDE
     Indication: Medication dilution
     Dosage: 100 ML, ONCE A DAY, USED TO DILUTE 1 G OF CYCLOPHOSPHAMIDE, FIRST CYCLE
     Route: 041
     Dates: start: 20240605, end: 20240605
  4. SODIUM CHLORIDE [Suspect]
     Active Substance: SODIUM CHLORIDE
     Dosage: 250 ML, ONCE A DAY, USED TO DILUTE 150 MG OF EPIRUBICIN HYDROCHLORIDE, FIRST CYCLE
     Route: 041
     Dates: start: 20240605, end: 20240605
  5. EPIRUBICIN HYDROCHLORIDE [Suspect]
     Active Substance: EPIRUBICIN HYDROCHLORIDE
     Indication: Breast cancer female
     Dosage: 150 MG, ONCE A DAY, DILUTED WITH 250 ML OF 0.9% SODIUM CHLORIDE, FIRST CYCLE
     Route: 041
     Dates: start: 20240605, end: 20240605
  6. EPIRUBICIN HYDROCHLORIDE [Suspect]
     Active Substance: EPIRUBICIN HYDROCHLORIDE
     Indication: Adjuvant therapy

REACTIONS (3)
  - Myelosuppression [Recovered/Resolved]
  - White blood cell count decreased [Recovering/Resolving]
  - Granulocyte count decreased [Recovering/Resolving]

NARRATIVE: CASE EVENT DATE: 20240620
